FAERS Safety Report 8742054 (Version 5)
Quarter: 2012Q4

REPORT INFORMATION
  Report Type: 
  Country: IT (occurrence: IT)
  Receive Date: 20120824
  Receipt Date: 20121130
  Transmission Date: 20130627
  Serious: Yes (Hospitalization, Other)
  Sender: FDA-Public Use
  Company Number: IT-PFIZER INC-2012205423

PATIENT
  Age: 56 Year
  Sex: Male

DRUGS (2)
  1. SUTENT [Suspect]
     Indication: RENAL CELL CARCINOMA
     Dosage: 50 mg, 1x/day
     Route: 048
     Dates: start: 20120625, end: 20120709
  2. SUTENT [Suspect]
     Dosage: 37.5 mg, 1x/day
     Dates: start: 20120828

REACTIONS (7)
  - Cholangitis [Recovered/Resolved]
  - Haematuria [Unknown]
  - Nausea [Unknown]
  - Decreased appetite [Unknown]
  - Anaemia [Unknown]
  - Hiccups [Unknown]
  - Vomiting [Unknown]
